FAERS Safety Report 18313419 (Version 1)
Quarter: 2020Q3

REPORT INFORMATION
  Report Type: Report from Study
  Country: CO (occurrence: CO)
  Receive Date: 20200925
  Receipt Date: 20200925
  Transmission Date: 20201103
  Serious: Yes (Other)
  Sender: FDA-Public Use
  Company Number: CO-JNJFOC-20191244815

PATIENT
  Age: 25 Year
  Sex: Male
  Weight: 65 kg

DRUGS (7)
  1. SIMPONI [Suspect]
     Active Substance: GOLIMUMAB
     Route: 058
     Dates: start: 20200909
  2. SIMPONI [Suspect]
     Active Substance: GOLIMUMAB
     Indication: ANKYLOSING SPONDYLITIS
     Route: 058
     Dates: start: 20191109, end: 20191209
  3. DOLEX                              /00020001/ [Concomitant]
     Indication: PRODUCT USED FOR UNKNOWN INDICATION
     Route: 065
  4. SIMPONI [Suspect]
     Active Substance: GOLIMUMAB
     Indication: RHEUMATOID ARTHRITIS
     Route: 058
     Dates: start: 20200122
  5. ESOMEPRAZOLE. [Concomitant]
     Active Substance: ESOMEPRAZOLE MAGNESIUM
     Indication: PRODUCT USED FOR UNKNOWN INDICATION
     Route: 065
  6. DIPYRONE [Concomitant]
     Active Substance: DIPYRONE
  7. TRIMEBUTINE [Concomitant]
     Active Substance: TRIMEBUTINE

REACTIONS (6)
  - Headache [Recovering/Resolving]
  - Flatulence [Recovering/Resolving]
  - Gastrooesophageal reflux disease [Recovering/Resolving]
  - Pyrexia [Recovering/Resolving]
  - Back pain [Recovered/Resolved]
  - Chest pain [Recovering/Resolving]

NARRATIVE: CASE EVENT DATE: 20191130
